FAERS Safety Report 17113149 (Version 12)
Quarter: 2020Q4

REPORT INFORMATION
  Report Type: Spontaneous
  Country: US (occurrence: US)
  Receive Date: 20191204
  Receipt Date: 20201020
  Transmission Date: 20210113
  Serious: Yes (Death, Hospitalization, Other)
  Sender: FDA-Public Use
  Company Number: US-MALLINCKRODT-T201907754

PATIENT
  Sex: Male
  Weight: 103 kg

DRUGS (6)
  1. H.P. ACTHAR [Suspect]
     Active Substance: CORTICOTROPIN
     Dosage: 1 MILLILITER (80 UNITS) THREE TIMES A WEEK
     Route: 058
     Dates: start: 202005, end: 2020
  2. UPADACITINIB [Concomitant]
     Active Substance: UPADACITINIB
     Indication: RHEUMATOID ARTHRITIS
     Dosage: 15 MILLIGRAM, UNK
     Route: 065
     Dates: start: 202003, end: 2020
  3. UPADACITINIB [Concomitant]
     Active Substance: UPADACITINIB
     Dosage: 1 TABLET DAILY
     Route: 048
     Dates: start: 2020
  4. H.P. ACTHAR [Suspect]
     Active Substance: CORTICOTROPIN
     Indication: RHEUMATOID ARTHRITIS
     Dosage: 80 UNITS, TWICE A WEEK
     Route: 065
     Dates: start: 20150605, end: 2015
  5. H.P. ACTHAR [Suspect]
     Active Substance: CORTICOTROPIN
     Dosage: (80 UNITS) 1 MILLILITER, TWICE A WEEK
     Route: 058
     Dates: start: 20150615
  6. H.P. ACTHAR [Suspect]
     Active Substance: CORTICOTROPIN
     Dosage: (80 UNITS) 1 MILLILITER, TWICE A WEEK
     Route: 058
     Dates: start: 201801, end: 2020

REACTIONS (11)
  - Pulmonary mass [Not Recovered/Not Resolved]
  - Blood test abnormal [Unknown]
  - Death [Fatal]
  - Chronic obstructive pulmonary disease [Not Recovered/Not Resolved]
  - Respiratory tract infection [Not Recovered/Not Resolved]
  - Intentional product misuse [Not Recovered/Not Resolved]
  - Pneumonia [Recovering/Resolving]
  - Pain [Not Recovered/Not Resolved]
  - Renal impairment [Recovering/Resolving]
  - Gait inability [Not Recovered/Not Resolved]
  - Hypoacusis [Unknown]

NARRATIVE: CASE EVENT DATE: 2020
